FAERS Safety Report 5907923-2 (Version None)
Quarter: 2008Q4

REPORT INFORMATION
  Report Type: 
  Country: None (occurrence: None)
  Receive Date: 20081003
  Receipt Date: 20080922
  Transmission Date: 20090506
  Serious: Yes (Other)
  Sender: FDA-Public Use
  Company Number: US-ELI_LILLY_AND_COMPANY-US200807006263

PATIENT
  Sex: Male
  Weight: 19.501 kg

DRUGS (4)
  1. STRATTERA [Suspect]
     Indication: ATTENTION DEFICIT/HYPERACTIVITY DISORDER
     Dosage: 18 MG, UNK
     Dates: start: 20080702, end: 20080709
  2. STRATTERA [Suspect]
     Dosage: 25 MG, UNK
     Dates: start: 20080709, end: 20080725
  3. FOCALIN [Concomitant]
     Dosage: UNK, UNK
     Dates: start: 20080725
  4. FOCALIN [Concomitant]
     Dates: end: 20080709

REACTIONS (5)
  - AGGRESSION [None]
  - ANXIETY [None]
  - INSOMNIA [None]
  - PSYCHOMOTOR HYPERACTIVITY [None]
  - WITHDRAWAL SYNDROME [None]
